FAERS Safety Report 6772744-8 (Version None)
Quarter: 2010Q2

REPORT INFORMATION
  Report Type: 
  Country: None (occurrence: None)
  Receive Date: 20100616
  Receipt Date: 20100608
  Transmission Date: 20101027
  Serious: Yes (Hospitalization)
  Sender: FDA-Public Use
  Company Number: B0639480A

PATIENT
  Sex: Male

DRUGS (8)
  1. OFATUMUMAB [Suspect]
     Indication: CHRONIC LYMPHOCYTIC LEUKAEMIA
     Route: 042
     Dates: start: 20090728, end: 20090908
  2. TAVANIC [Concomitant]
     Indication: INFECTION
     Dosage: 500MG TWICE PER DAY
     Route: 048
     Dates: start: 20090924, end: 20091016
  3. MABCAMPATH [Concomitant]
     Indication: CHRONIC LYMPHOCYTIC LEUKAEMIA
     Dates: start: 20090909, end: 20090914
  4. ACETAMINOPHEN [Concomitant]
     Indication: PREMEDICATION
     Dosage: 1000MG PER DAY
     Route: 048
  5. ATARAX [Concomitant]
     Indication: PREMEDICATION
     Dosage: 25MG PER DAY
     Route: 048
  6. METHYLPREDNISOLONE [Concomitant]
     Indication: PREMEDICATION
     Dosage: 50MG PER DAY
     Route: 042
  7. LEVOFLOXACIN [Concomitant]
     Indication: ANTIBIOTIC PROPHYLAXIS
  8. ALEMTUZUMAB [Concomitant]
     Dates: start: 20090909, end: 20090914

REACTIONS (8)
  - DISEASE PROGRESSION [None]
  - ERYTHEMA MULTIFORME [None]
  - ORAL DISORDER [None]
  - PEMPHIGUS [None]
  - PURPURA [None]
  - RASH GENERALISED [None]
  - URTICARIA [None]
  - VASCULITIS [None]
